FAERS Safety Report 7087559-3 (Version None)
Quarter: 2010Q4

REPORT INFORMATION
  Report Type: 
  Country: None (occurrence: None)
  Receive Date: 20101108
  Receipt Date: 20101027
  Transmission Date: 20110411
  Serious: No
  Sender: FDA-Public Use
  Company Number: US-BIOGENIDEC-2010BI038196

PATIENT
  Sex: Female

DRUGS (3)
  1. TYSABRI [Suspect]
     Indication: MULTIPLE SCLEROSIS
     Route: 042
     Dates: start: 20061128, end: 20080512
  2. TYSABRI [Suspect]
     Route: 042
     Dates: start: 20080618, end: 20091117
  3. TYSABRI [Suspect]
     Route: 042
     Dates: start: 20100407

REACTIONS (4)
  - BLINDNESS UNILATERAL [None]
  - EYE DISORDER [None]
  - EYE PAIN [None]
  - OPTIC NEURITIS [None]
